FAERS Safety Report 25460092 (Version 1)
Quarter: 2025Q2

REPORT INFORMATION
  Report Type: Report from Study
  Country: NL (occurrence: NL)
  Receive Date: 20250620
  Receipt Date: 20250620
  Transmission Date: 20250716
  Serious: Yes (Other)
  Sender: BAYER HEALTHCARE PHARMACEUTICALS INC.
  Company Number: NL-BAYER-2025A081914

PATIENT
  Sex: Male

DRUGS (6)
  1. RADIUM [Suspect]
     Active Substance: RADIUM
     Indication: Hormone-refractory prostate cancer
  2. RADIUM [Suspect]
     Active Substance: RADIUM
     Indication: Metastases to bone
  3. RADIUM [Suspect]
     Active Substance: RADIUM
     Indication: Hormone-refractory prostate cancer
  4. RADIUM [Suspect]
     Active Substance: RADIUM
     Indication: Hormone-refractory prostate cancer
  5. RADIUM [Suspect]
     Active Substance: RADIUM
     Indication: Hormone-refractory prostate cancer
  6. RADIUM [Suspect]
     Active Substance: RADIUM
     Indication: Hormone-refractory prostate cancer

REACTIONS (1)
  - Dyspnoea [None]
